FAERS Safety Report 5140043-6 (Version None)
Quarter: 2006Q4

REPORT INFORMATION
  Report Type: 
  Country: None (occurrence: None)
  Receive Date: 20061025
  Receipt Date: 20061025
  Transmission Date: 20070319
  Serious: Yes (Hospitalization)
  Sender: FDA-Public Use
  Company Number: None

PATIENT
  Age: 54 Year
  Sex: Male

DRUGS (1)
  1. AMOXICILLIN AND CLAVULANATE POTASSIUM [Suspect]
     Indication: INFECTION
     Dosage: 1 TABLET Q 8 HR
     Dates: start: 20060815, end: 20060825

REACTIONS (3)
  - RASH [None]
  - THERAPY NON-RESPONDER [None]
  - URTICARIA [None]
